FAERS Safety Report 6755582-1 (Version None)
Quarter: 2010Q2

REPORT INFORMATION
  Report Type: 
  Country: None (occurrence: None)
  Receive Date: 20100604
  Receipt Date: 20100521
  Transmission Date: 20101027
  Serious: Yes (Hospitalization, Other)
  Sender: FDA-Public Use
  Company Number: PHFR2010GB00451

PATIENT
  Sex: Female
  Weight: 88.2 kg

DRUGS (10)
  1. CLOZARIL [Suspect]
     Indication: BIPOLAR DISORDER
     Dosage: 12.5MG + 25MG
     Route: 048
     Dates: start: 20100408, end: 20100429
  2. CLOZARIL [Suspect]
     Dosage: UNK
  3. LANSOPRAZOLE [Concomitant]
     Indication: PROPHYLAXIS AGAINST GASTROINTESTINAL ULCER
     Dosage: UNK
     Route: 048
  4. PRIADEL - SLOW RELEASE [Concomitant]
     Indication: BIPOLAR DISORDER
     Dosage: UNK
     Route: 048
  5. BECLOMETHASONE DIPROPIONATE [Concomitant]
     Indication: POSTNASAL DRIP
     Dosage: 100 UG, BID
     Route: 045
  6. METFORMIN [Concomitant]
     Indication: DIABETES MELLITUS
     Dosage: 500 MG, BID
     Route: 048
  7. ENALAPRIL [Concomitant]
     Indication: HYPERTENSION
     Dosage: 5 MG, QD
     Route: 048
  8. LEVOTHYROXINE SODIUM [Concomitant]
     Indication: HYPOTHYROIDISM
     Dosage: UNK
     Route: 048
  9. DOCUSATE SODIUM [Concomitant]
     Indication: CONSTIPATION
     Dosage: UNK
     Route: 048
  10. LAMOTRIGINE [Concomitant]
     Indication: BIPOLAR DISORDER
     Dosage: UNK
     Route: 048

REACTIONS (7)
  - ACUTE CORONARY SYNDROME [None]
  - ACUTE MYOCARDIAL INFARCTION [None]
  - C-REACTIVE PROTEIN INCREASED [None]
  - CHEST PAIN [None]
  - MYOCARDITIS [None]
  - TROPONIN INCREASED [None]
  - WHITE BLOOD CELL COUNT INCREASED [None]
